FAERS Safety Report 17244380 (Version 2)
Quarter: 2020Q1

REPORT INFORMATION
  Report Type: Report from Study
  Country: US (occurrence: US)
  Receive Date: 20200107
  Receipt Date: 20200211
  Transmission Date: 20200409
  Serious: Yes (Other)
  Sender: FDA-Public Use
  Company Number: US-BEH-2020111454

PATIENT
  Age: 76 Year
  Sex: Male
  Weight: 83 kg

DRUGS (6)
  1. BERIPLEX P/N [Suspect]
     Active Substance: COAGULATION FACTOR IX HUMAN\COAGULATION FACTOR VII HUMAN\COAGULATION FACTOR X HUMAN\PROTEIN C\PROTEIN S HUMAN\PROTHROMBIN
     Indication: PROCEDURAL HAEMORRHAGE
     Dosage: 500 INTERNATIONAL UNIT (6 IU/KG) IN THE OR
     Route: 065
  2. BERIPLEX P/N [Suspect]
     Active Substance: COAGULATION FACTOR IX HUMAN\COAGULATION FACTOR VII HUMAN\COAGULATION FACTOR X HUMAN\PROTEIN C\PROTEIN S HUMAN\PROTHROMBIN
     Indication: MITRAL VALVE REPAIR
     Dosage: 1000 INTERNATIONAL UNIT (POSTOPERATIVE DAY 0)
     Route: 065
  3. BERIPLEX P/N [Suspect]
     Active Substance: COAGULATION FACTOR IX HUMAN\COAGULATION FACTOR VII HUMAN\COAGULATION FACTOR X HUMAN\PROTEIN C\PROTEIN S HUMAN\PROTHROMBIN
     Indication: AORTIC ANEURYSM REPAIR
     Dosage: 500 INTERNATIONAL UNIT (POSTOPERATIVE DAY 1)
     Route: 065
  4. BERIPLEX P/N [Suspect]
     Active Substance: COAGULATION FACTOR IX HUMAN\COAGULATION FACTOR VII HUMAN\COAGULATION FACTOR X HUMAN\PROTEIN C\PROTEIN S HUMAN\PROTHROMBIN
     Indication: PROCEDURAL HAEMORRHAGE
     Dosage: 500 INTERNATIONAL UNIT (6 IU/KG) IN THE OR
     Route: 065
  5. BERIPLEX P/N [Suspect]
     Active Substance: COAGULATION FACTOR IX HUMAN\COAGULATION FACTOR VII HUMAN\COAGULATION FACTOR X HUMAN\PROTEIN C\PROTEIN S HUMAN\PROTHROMBIN
     Indication: MITRAL VALVE REPAIR
     Dosage: 1000 INTERNATIONAL UNIT (POSTOPERATIVE DAY 0)
     Route: 065
  6. BERIPLEX P/N [Suspect]
     Active Substance: COAGULATION FACTOR IX HUMAN\COAGULATION FACTOR VII HUMAN\COAGULATION FACTOR X HUMAN\PROTEIN C\PROTEIN S HUMAN\PROTHROMBIN
     Indication: AORTIC ANEURYSM REPAIR
     Dosage: 500 INTERNATIONAL UNIT (POSTOPERATIVE DAY 1)
     Route: 065

REACTIONS (1)
  - Deep vein thrombosis [Unknown]
